FAERS Safety Report 20631315 (Version 3)
Quarter: 2022Q2

REPORT INFORMATION
  Report Type: Report from Study
  Country: JP (occurrence: JP)
  Receive Date: 20220324
  Receipt Date: 20220406
  Transmission Date: 20220721
  Serious: Yes (Hospitalization)
  Sender: FDA-Public Use
  Company Number: JP-ASTELLAS-2022JP004686

PATIENT
  Age: 54 Year
  Sex: Male

DRUGS (25)
  1. GILTERITINIB [Suspect]
     Active Substance: GILTERITINIB
     Indication: Acute myeloid leukaemia
     Route: 065
     Dates: start: 20201229
  2. GILTERITINIB [Suspect]
     Active Substance: GILTERITINIB
     Route: 065
     Dates: start: 20210413
  3. GILTERITINIB [Suspect]
     Active Substance: GILTERITINIB
     Dosage: MAINTENANCE THERAPY: UNK, UNK, UNKNOWN FREQ.
     Route: 065
     Dates: start: 20210817, end: 20220320
  4. IDARUBICIN [Suspect]
     Active Substance: IDARUBICIN
     Indication: Acute myeloid leukaemia
     Dosage: REMISSION INDUCTION THERAPY PERIOD: 12 MG/M2, ONCE DAILY, DAY 1 TO DAY 3
     Route: 065
     Dates: start: 20201222, end: 20201224
  5. CYTARABINE [Suspect]
     Active Substance: CYTARABINE
     Indication: Acute myeloid leukaemia
     Dosage: REMISSION INDUCTION THERAPY PERIOD: 100 MG/M2, ONCE DAILY, DAY 1 TO DAY 7
     Route: 065
     Dates: start: 20201222, end: 20201229
  6. CYTARABINE [Suspect]
     Active Substance: CYTARABINE
     Dosage: CONSOLIDATION THERAPY PERIOD: 1.5 G/M2, TWICE DAILY AT DAY 1, 3, 5
     Route: 042
     Dates: start: 20210202, end: 20210206
  7. CYTARABINE [Suspect]
     Active Substance: CYTARABINE
     Dosage: CONSOLIDATION THERAPY PERIOD: 1.5 G/M2, TWICE DAILY AT DAY 1, 3, 5
     Route: 042
     Dates: start: 20210302, end: 20210306
  8. MIYA-BM [Concomitant]
     Active Substance: CLOSTRIDIUM BUTYRICUM SPORES STRAIN M-55
     Indication: Prophylaxis against diarrhoea
     Route: 048
  9. PETROLATUM [Concomitant]
     Active Substance: PETROLATUM
     Indication: Furuncle
     Dosage: ADEQUATE DOSE, SEVELAL TIMES PER DAY
     Route: 062
  10. URSODIOL [Concomitant]
     Active Substance: URSODIOL
     Indication: Hepatic steatosis
     Route: 048
  11. VEMLIDY [Concomitant]
     Active Substance: TENOFOVIR ALAFENAMIDE FUMARATE
     Indication: Hepatitis B
     Route: 048
     Dates: start: 20201226
  12. GLYCOSAMINOGLYCANS [Concomitant]
     Active Substance: GLYCOSAMINOGLYCANS
     Indication: Rash
     Dosage: ADEQUATE DOSE, SEVELAL TIMES PER DAY
     Route: 062
     Dates: start: 20201228
  13. VOALLA [Concomitant]
     Indication: Rash
     Dosage: ADEQUATE DOSE, SEVELAL TIMES PER DAY
     Route: 062
     Dates: start: 20201228
  14. SODIUM GUALENATE MONOHYDRATE [Concomitant]
     Active Substance: SODIUM GUALENATE MONOHYDRATE
     Indication: Prophylaxis
     Dosage: ADEQUATE DOSE, SEVELAL TIMES PER DAY
     Route: 048
     Dates: start: 20201229
  15. RABEPRAZOLE SODIUM [Concomitant]
     Active Substance: RABEPRAZOLE SODIUM
     Indication: Gastritis prophylaxis
     Route: 048
     Dates: start: 20210107
  16. TELMISARTAN [Concomitant]
     Active Substance: TELMISARTAN
     Indication: Hypertension
     Route: 048
     Dates: start: 20210116
  17. AMLODIPINE [Concomitant]
     Active Substance: AMLODIPINE BESYLATE
     Indication: Hypertension
     Route: 048
     Dates: start: 20210116
  18. SULFAMETHOXAZOLE\TRIMETHOPRIM [Concomitant]
     Active Substance: SULFAMETHOXAZOLE\TRIMETHOPRIM
     Indication: Infection prophylaxis
     Dosage: 0.5 TABLET, ONCE DAILY
     Route: 048
     Dates: start: 20210226
  19. ACYCLOVIR [Concomitant]
     Active Substance: ACYCLOVIR
     Indication: Rash
     Route: 048
     Dates: start: 20210325
  20. VFEND [Concomitant]
     Active Substance: VORICONAZOLE
     Indication: Infection prophylaxis
     Route: 048
     Dates: start: 20210327
  21. PROGRAF [Concomitant]
     Active Substance: TACROLIMUS
     Indication: Graft versus host disease
     Dosage: 0.2 G, TWICE DAILY
     Route: 048
     Dates: start: 20210903
  22. PREDNISOLONE [Concomitant]
     Active Substance: PREDNISOLONE
     Indication: Graft versus host disease
     Route: 048
     Dates: start: 20220121
  23. MIROGABALIN BESYLATE [Concomitant]
     Active Substance: MIROGABALIN BESYLATE
     Indication: Back pain
     Route: 048
     Dates: start: 20220121
  24. FELBINAC [Concomitant]
     Active Substance: FELBINAC
     Indication: Back pain
     Dosage: ADEQUATE DOSE, ONCE DAILY
     Route: 062
     Dates: start: 20220204
  25. VIDARABINE [Concomitant]
     Active Substance: VIDARABINE
     Indication: Herpes simplex
     Dosage: ADEQUATE DOSE, ONCE DAILY
     Route: 062
     Dates: start: 20220204

REACTIONS (1)
  - Pneumonia [Recovering/Resolving]

NARRATIVE: CASE EVENT DATE: 20220318
